FAERS Safety Report 6518092-2 (Version None)
Quarter: 2009Q4

REPORT INFORMATION
  Report Type: 
  Country: None (occurrence: None)
  Receive Date: 20091224
  Receipt Date: 20091217
  Transmission Date: 20100525
  Serious: Yes (Hospitalization, Other)
  Sender: FDA-Public Use
  Company Number: US-ELI_LILLY_AND_COMPANY-US200909000315

PATIENT
  Sex: Female

DRUGS (29)
  1. FORTEO [Suspect]
     Indication: OSTEOPOROSIS POSTMENOPAUSAL
     Dosage: 20 UG, DAILY (1/D)
     Dates: start: 20090810
  2. GLYBURIDE [Concomitant]
     Indication: DIABETES MELLITUS
     Dosage: 10 MG, 2/D
  3. METFORMIN HCL [Concomitant]
     Indication: DIABETES MELLITUS
     Dosage: 1000 MG, 2/D
  4. LANTUS [Concomitant]
     Indication: DIABETES MELLITUS
     Dosage: UNK U, UNK
  5. OXYGEN [Concomitant]
     Dosage: 2 LITER, EACH EVENING
  6. ULTRAM [Concomitant]
     Dosage: 50 MG, 3/D
  7. IBUPROFEN [Concomitant]
     Dosage: 800 MG, 3/D
  8. SKELAXIN [Concomitant]
     Dosage: 400 MG, 2/D
  9. CYCLOBENZAPRINE [Concomitant]
     Indication: MUSCLE SPASMS
     Dosage: 10 MG, EACH EVENING
  10. LOVASTATIN [Concomitant]
     Indication: BLOOD CHOLESTEROL INCREASED
     Dosage: 400 MG, DAILY (1/D)
  11. NEXIUM [Concomitant]
     Dosage: 80 MG, EACH MORNING
  12. SINGULAIR [Concomitant]
     Dosage: 10 MG, EACH EVENING
  13. SEREVENT [Concomitant]
     Dosage: 13 UG, 2/D
  14. PULMICORT [Concomitant]
     Dosage: 400 UG, 2/D
  15. ALBUTEROL [Concomitant]
     Dosage: 180 UG, DAILY (1/D)
  16. ALBUTEROL [Concomitant]
     Dosage: UNK, AS NEEDED
  17. ARTIFICIAL TEARS /00445101/ [Concomitant]
  18. RHINOCORT [Concomitant]
     Dosage: 2 D/F, EACH EVENING
  19. ZYRTEC [Concomitant]
     Dosage: 10 MG, EACH EVENING
  20. MSM WITH GLUCOSAMINE /05460301/ [Concomitant]
     Dosage: 500 MG, 3/D
  21. ESTROVEN /02150801/ [Concomitant]
     Dosage: 1 D/F, EACH MORNING
  22. BENADRYL [Concomitant]
     Dosage: 25 MG, EACH EVENING
  23. HERBAL PREPARATION [Concomitant]
     Dosage: 1000 MG, 2/D
  24. CENTRUM SILVER [Concomitant]
  25. CALCIUM CARBONATE W/VITAMIN D /00944201/ [Concomitant]
     Dosage: 630 MG, EACH EVENING
  26. ACIDOPHILUS [Concomitant]
     Dosage: 34 MG, 3/D
  27. HERBAL OIL NOS [Concomitant]
     Dosage: 1000 MG, 2/D
  28. PROGESTERONE [Concomitant]
     Dosage: 0.25 D/F, 2/D
  29. BACTRIM [Concomitant]
     Indication: HUMAN SEMINAL PLASMA HYPERSENSITIVITY
     Dosage: UNK, AS NEEDED

REACTIONS (8)
  - AORTIC STENOSIS [None]
  - CARDIAC STRESS TEST [None]
  - CATHETERISATION CARDIAC [None]
  - FATIGUE [None]
  - HAEMATURIA [None]
  - HAEMORRHAGE [None]
  - IRON DEFICIENCY ANAEMIA [None]
  - MUSCLE SPASMS [None]
